FAERS Safety Report 8576569-2 (Version None)
Quarter: 2012Q3

REPORT INFORMATION
  Report Type: 
  Country: None (occurrence: None)
  Receive Date: 20120807
  Receipt Date: 20111209
  Transmission Date: 20120928
  Serious: Yes (Death, Hospitalization)
  Sender: FDA-Public Use
  Company Number: DE-CELGENEUS-062-50794-12053190

PATIENT
  Age: 81 Year
  Sex: Male
  Weight: 69 kg

DRUGS (4)
  1. VIDAZA [Suspect]
     Route: 058
     Dates: start: 20100909
  2. VIDAZA [Suspect]
     Route: 058
     Dates: start: 20101103, end: 20101105
  3. RED BLOOD CELLS [Concomitant]
     Route: 065
     Dates: end: 20100903
  4. RED BLOOD CELLS [Concomitant]
     Route: 065
     Dates: start: 20100901

REACTIONS (7)
  - CARDIAC FAILURE [None]
  - DISEASE PROGRESSION [None]
  - THROMBOCYTOPENIA [None]
  - LEUKOPENIA [None]
  - INJECTION SITE REACTION [None]
  - ATRIAL FIBRILLATION [None]
  - ANAEMIA [None]
